FAERS Safety Report 6710351-3 (Version None)
Quarter: 2010Q2

REPORT INFORMATION
  Report Type: 
  Country: None (occurrence: None)
  Receive Date: 20100504
  Receipt Date: 20100427
  Transmission Date: 20101027
  Serious: Yes (Death)
  Sender: FDA-Public Use
  Company Number: DK-ELI_LILLY_AND_COMPANY-DK201004007716

PATIENT

DRUGS (3)
  1. GEMCITABINE HCL [Suspect]
     Indication: METASTATIC NEOPLASM
     Dosage: 1000 MG/M2, OTHER (30 MINUTES INFUSION)
     Route: 042
  2. PACLITAXEL [Concomitant]
     Indication: METASTATIC NEOPLASM
     Dosage: 175 MG/M2, OTHER (3 HRS INFUSION)
     Route: 042
  3. CISPLATIN [Concomitant]
     Dosage: 75 MG/M2, OTHER
     Route: 065

REACTIONS (2)
  - FEBRILE NEUTROPENIA [None]
  - RENAL FAILURE [None]
